FAERS Safety Report 8471387-8 (Version None)
Quarter: 2012Q2

REPORT INFORMATION
  Report Type: 
  Country: None (occurrence: None)
  Receive Date: 20120627
  Receipt Date: 20120614
  Transmission Date: 20120825
  Serious: Yes (Death, Congenital Anomaly, Other)
  Sender: FDA-Public Use
  Company Number: US-PFIZER INC-2012150950

PATIENT

DRUGS (1)
  1. ZOLOFT [Suspect]
     Indication: DEPRESSION
     Dosage: UNK
     Route: 064

REACTIONS (3)
  - LIMB MALFORMATION [None]
  - CONGENITAL ANOMALY [None]
  - MATERNAL EXPOSURE TIMING UNSPECIFIED [None]
